FAERS Safety Report 24220627 (Version 1)
Quarter: 2024Q3

REPORT INFORMATION
  Report Type: Spontaneous
  Country: FR (occurrence: FR)
  Receive Date: 20240818
  Receipt Date: 20240818
  Transmission Date: 20241017
  Serious: Yes (Hospitalization)
  Sender: TEVA
  Company Number: None

PATIENT
  Age: 15 Year
  Sex: Female
  Weight: 59 kg

DRUGS (3)
  1. ALPRAZOLAM [Suspect]
     Active Substance: ALPRAZOLAM
     Indication: Intentional product misuse
     Dosage: 3 TABLETS OF 0.25 MG
     Route: 048
     Dates: start: 20240702, end: 20240702
  2. BROMAZEPAM [Suspect]
     Active Substance: BROMAZEPAM
     Indication: Anxiety
     Dosage: 20 TABLETS OF 6 MG,  QUADRISCORED TABLET
     Route: 048
     Dates: start: 20240702, end: 20240702
  3. DULOXETINE [Suspect]
     Active Substance: DULOXETINE
     Indication: Intentional product misuse
     Dosage: 21 TABLETS OF 30MG, DULOXETINE (HYDROCHLORIDE)
     Route: 048
     Dates: start: 20240702, end: 20240702

REACTIONS (2)
  - Toxicity to various agents [Recovered/Resolved]
  - Intentional overdose [Recovered/Resolved]

NARRATIVE: CASE EVENT DATE: 20240702
